FAERS Safety Report 5961652-8 (Version None)
Quarter: 2008Q4

REPORT INFORMATION
  Report Type: 
  Country: None (occurrence: None)
  Receive Date: 20081119
  Receipt Date: 20081105
  Transmission Date: 20090506
  Serious: Yes (Hospitalization)
  Sender: FDA-Public Use
  Company Number: 0288

PATIENT
  Age: 82 Year
  Sex: Male

DRUGS (7)
  1. INDOMETHACIN [Suspect]
     Indication: PAIN
     Route: 048
     Dates: start: 20080707
  2. DICLOFENAC SODIUM [Suspect]
     Indication: PAIN
     Route: 048
     Dates: start: 20080701
  3. DEXKETOPROFEN TROMETAMOL [Suspect]
     Indication: PAIN
     Dosage: PO
     Route: 048
     Dates: start: 20080716
  4. LISINOPRIL [Concomitant]
  5. NOLOTIL [Concomitant]
  6. FABROVEN [Concomitant]
  7. HESPERIDINA METILCHALCONA . ORAL (RUSCUS ACULEATUS EXTRACT) [Concomitant]

REACTIONS (2)
  - CARDIAC FAILURE ACUTE [None]
  - RENAL FAILURE ACUTE [None]
